FAERS Safety Report 6970251-0 (Version None)
Quarter: 2010Q3

REPORT INFORMATION
  Report Type: 
  Country: None (occurrence: None)
  Receive Date: 20100908
  Receipt Date: 20100825
  Transmission Date: 20110219
  Serious: Yes (Other)
  Sender: FDA-Public Use
  Company Number: PHHY2010DE02470

PATIENT
  Sex: Male
  Weight: 101 kg

DRUGS (4)
  1. RASILEZ [Suspect]
     Indication: HYPERTENSION
     Dosage: 300 MG/DAY
     Route: 048
     Dates: start: 20090701, end: 20100101
  2. DIOVAN HCT [Suspect]
     Indication: HYPERTENSION
     Dosage: 160 VALS - 12.5 HCTZ MG/DAY
     Dates: end: 20100101
  3. DIOVAN HCT [Suspect]
     Dosage: UNK
     Dates: start: 20100101, end: 20100209
  4. SERTAN [Concomitant]
     Indication: HYPERTENSION

REACTIONS (3)
  - GLOMERULAR FILTRATION RATE DECREASED [None]
  - RENAL IMPAIRMENT [None]
  - RENIN INCREASED [None]
